FAERS Safety Report 8617202-0 (Version None)
Quarter: 2012Q3

REPORT INFORMATION
  Report Type: 
  Country: None (occurrence: None)
  Receive Date: 20120823
  Receipt Date: 20120813
  Transmission Date: 20120928
  Serious: Yes (Other)
  Sender: FDA-Public Use
  Company Number: US-RB-043469-12

PATIENT
  Age: 72 Year
  Sex: Female

DRUGS (2)
  1. SUBOXONE [Suspect]
     Indication: PAIN
     Route: 060
     Dates: start: 20120701
  2. SUBOXONE [Suspect]
     Route: 060
     Dates: start: 20120701

REACTIONS (4)
  - SUICIDAL IDEATION [None]
  - MOOD SWINGS [None]
  - ANGER [None]
  - OEDEMA PERIPHERAL [None]
